FAERS Safety Report 11414635 (Version 2)
Quarter: 2016Q3

REPORT INFORMATION
  Report Type: Spontaneous
  Country: NO (occurrence: NO)
  Receive Date: 20150825
  Receipt Date: 20160909
  Transmission Date: 20161109
  Serious: Yes (Hospitalization, Other)
  Sender: FDA-Public Use
  Company Number: NO-009507513-1508NOR007049

PATIENT
  Age: 42 Year
  Sex: Female

DRUGS (12)
  1. PUREGON [Suspect]
     Active Substance: FOLLITROPIN
     Indication: UTERINE DISORDER
  2. PROGYNOVA [Concomitant]
     Active Substance: ESTRADIOL VALERATE
  3. PUREGON [Suspect]
     Active Substance: FOLLITROPIN
     Indication: ENDOMETRIOSIS
     Dosage: 175 IU FOR 8 DAYS
     Dates: start: 2003, end: 2003
  4. OVITRELLE [Concomitant]
     Active Substance: CHORIOGONADOTROPIN ALFA
     Indication: OVULATION INDUCTION
     Dosage: UNK
     Dates: start: 2003
  5. PUREGON [Suspect]
     Active Substance: FOLLITROPIN
     Indication: ENDOMETRIOSIS
     Dosage: 150 IU FOR 10 DAYS
     Dates: start: 2003, end: 2003
  6. PUREGON [Suspect]
     Active Substance: FOLLITROPIN
     Indication: IN VITRO FERTILISATION
  7. PUREGON [Suspect]
     Active Substance: FOLLITROPIN
     Indication: LEIOMYOMA
     Dosage: 150 IU FOR 7 DAYS
     Dates: start: 2003, end: 2003
  8. PUREGON [Suspect]
     Active Substance: FOLLITROPIN
     Indication: LEIOMYOMA
  9. PUREGON [Suspect]
     Active Substance: FOLLITROPIN
     Indication: UTERINE DISORDER
  10. CRINONE [Concomitant]
     Active Substance: PROGESTERONE
  11. SYNARELA [Concomitant]
     Active Substance: NAFARELIN ACETATE
     Indication: IN VITRO FERTILISATION
     Dosage: UNK
     Dates: start: 2003
  12. PUREGON [Suspect]
     Active Substance: FOLLITROPIN
     Indication: IN VITRO FERTILISATION

REACTIONS (16)
  - Weight increased [Unknown]
  - Uterine mass [Unknown]
  - Heart rate increased [Unknown]
  - Premenstrual pain [Unknown]
  - Mental disorder [Unknown]
  - Functional gastrointestinal disorder [Unknown]
  - Endometriosis [Unknown]
  - Ovarian cyst [Unknown]
  - Limb discomfort [Unknown]
  - Diverticulum [Unknown]
  - Liver disorder [Unknown]
  - Hormone level abnormal [Unknown]
  - Genital disorder female [Unknown]
  - Cholelithiasis [Unknown]
  - Hypertension [Unknown]
  - Drug ineffective [Unknown]

NARRATIVE: CASE EVENT DATE: 20110712
